FAERS Safety Report 22359819 (Version 1)
Quarter: 2023Q2

REPORT INFORMATION
  Report Type: Spontaneous
  Country: GB (occurrence: GB)
  Receive Date: 20230524
  Receipt Date: 20230524
  Transmission Date: 20230721
  Serious: Yes (Other)
  Sender: FDA-Public Use
  Company Number: GB-MHRA-MED-202305121108127450-NVGFZ

PATIENT
  Age: 70 Year
  Sex: Male
  Weight: 77 kg

DRUGS (7)
  1. FREMANEZUMAB [Suspect]
     Active Substance: FREMANEZUMAB
     Indication: Migraine
     Dosage: 225MG MONTHLY
     Route: 065
     Dates: start: 20210106
  2. LATANOPROST [Concomitant]
     Active Substance: LATANOPROST
     Indication: Adverse drug reaction
  3. LATANOPROST [Concomitant]
     Active Substance: LATANOPROST
     Indication: Ocular hypertension
  4. PREGABALIN [Concomitant]
     Active Substance: PREGABALIN
     Indication: Neck pain
  5. SOLIFENACIN [Concomitant]
     Active Substance: SOLIFENACIN
     Indication: Adverse drug reaction
  6. SOLIFENACIN [Concomitant]
     Active Substance: SOLIFENACIN
     Indication: Urinary incontinence
  7. TEVA UK ZOPICLONE [Concomitant]
     Indication: Sleep disorder

REACTIONS (2)
  - Peripheral coldness [Not Recovered/Not Resolved]
  - Peripheral coldness [Not Recovered/Not Resolved]

NARRATIVE: CASE EVENT DATE: 20210301
